FAERS Safety Report 13767957 (Version 8)
Quarter: 2018Q2

REPORT INFORMATION
  Report Type: Spontaneous
  Country: JP (occurrence: JP)
  Receive Date: 20170719
  Receipt Date: 20180614
  Transmission Date: 20180711
  Serious: Yes (Other)
  Sender: FDA-Public Use
  Company Number: JP-009507513-1706JPN000755J

PATIENT
  Age: 70 Year
  Sex: Male
  Weight: 64 kg

DRUGS (3)
  1. KEYTRUDA [Suspect]
     Active Substance: PEMBROLIZUMAB
     Indication: ACRAL LENTIGINOUS MELANOMA
     Dosage: 140 MG, Q3W
     Route: 041
     Dates: start: 20170516, end: 20180220
  2. KEYTRUDA [Suspect]
     Active Substance: PEMBROLIZUMAB
     Dosage: 120 MG, Q3W
     Route: 041
     Dates: start: 20180521
  3. PREDONINE [Concomitant]
     Active Substance: PREDNISOLONE
     Dosage: 4 MG, QD
     Route: 048

REACTIONS (5)
  - Blood corticotrophin decreased [Unknown]
  - Delirium [Recovering/Resolving]
  - Sjogren^s syndrome [Not Recovered/Not Resolved]
  - Rash [Not Recovered/Not Resolved]
  - Cortisol decreased [Unknown]

NARRATIVE: CASE EVENT DATE: 20170517
